FAERS Safety Report 4674741-5 (Version None)
Quarter: 2005Q2

REPORT INFORMATION
  Report Type: 
  Country: None (occurrence: None)
  Receive Date: 20050525
  Receipt Date: 20050512
  Transmission Date: 20051028
  Serious: Yes (Other)
  Sender: FDA-Public Use
  Company Number: 2005074139

PATIENT
  Age: 20 Year
  Sex: Female

DRUGS (1)
  1. DRAMAMINE DROWSY FORMULA (DIMENHYDRINATE) [Suspect]
     Dosage: ALOT OF PILLS ONCE, ORAL
     Route: 048
     Dates: start: 20050512, end: 20050512

REACTIONS (2)
  - OVERDOSE [None]
  - TREMOR [None]
